FAERS Safety Report 9138647 (Version 1)
Quarter: 2013Q1

REPORT INFORMATION
  Report Type: Spontaneous
  Country: US (occurrence: US)
  Receive Date: 20130305
  Receipt Date: 20130305
  Transmission Date: 20140127
  Serious: No
  Sender: FDA-Public Use
  Company Number: US-BAYER-2013-026953

PATIENT
  Age: 65 Year
  Sex: Male
  Weight: 104.31 kg

DRUGS (4)
  1. ALEVE CAPLET/TABLET,MIDOL EXTENDED RELIEF CAPLET [Suspect]
     Indication: BACK PAIN
     Dosage: 1 DF, QD
     Route: 048
     Dates: start: 20130222, end: 20130222
  2. INSULIN [Concomitant]
  3. JANUMET [Concomitant]
  4. GLIPIZIDE [Concomitant]

REACTIONS (3)
  - Pruritus generalised [Recovered/Resolved]
  - Eye pruritus [Recovered/Resolved]
  - Tongue pruritus [Recovered/Resolved]
